FAERS Safety Report 6747712-2 (Version None)
Quarter: 2010Q2

REPORT INFORMATION
  Report Type: 
  Country: None (occurrence: None)
  Receive Date: 20100528
  Receipt Date: 20100521
  Transmission Date: 20101027
  Serious: Yes (Other)
  Sender: FDA-Public Use
  Company Number: US-ELI_LILLY_AND_COMPANY-US201005006366

PATIENT
  Sex: Male

DRUGS (3)
  1. HUMULIN N [Suspect]
     Indication: DIABETES MELLITUS
     Dosage: 4 U, OTHER
     Dates: start: 19830101
  2. HUMULIN R [Suspect]
     Indication: DIABETES MELLITUS
     Dosage: 12 U, EACH MORNING
  3. HUMULIN R [Suspect]
     Dosage: 8 U, OTHER

REACTIONS (4)
  - BLOOD URINE PRESENT [None]
  - COMA [None]
  - EXPIRED DRUG ADMINISTERED [None]
  - PROTEIN URINE [None]
